FAERS Safety Report 17416564 (Version 2)
Quarter: 2020Q4

REPORT INFORMATION
  Report Type: Spontaneous
  Country: US (occurrence: US)
  Receive Date: 20200214
  Receipt Date: 20201126
  Transmission Date: 20210113
  Serious: Yes (Death, Other)
  Sender: FDA-Public Use
  Company Number: US-PFIZER INC-2020051226

PATIENT
  Age: 60 Year
  Sex: Female

DRUGS (6)
  1. CARBOPLATIN. [Concomitant]
     Active Substance: CARBOPLATIN
     Indication: SMALL CELL LUNG CANCER
     Dosage: UNK, CYCLIC
  2. ALECTINIB. [Concomitant]
     Active Substance: ALECTINIB
     Indication: SMALL CELL LUNG CANCER
     Dosage: UNK, CYCLIC
  3. METHYLPREDNISOLONE ACETATE. [Concomitant]
     Active Substance: METHYLPREDNISOLONE ACETATE
     Indication: PNEUMONITIS
     Dosage: UNK
     Route: 042
  4. PEMETREXED. [Concomitant]
     Active Substance: PEMETREXED
     Indication: SMALL CELL LUNG CANCER
     Dosage: UNK, CYCLIC
  5. METHYLPREDNISOLONE ACETATE. [Concomitant]
     Active Substance: METHYLPREDNISOLONE ACETATE
     Indication: EVIDENCE BASED TREATMENT
  6. LORLATINIB [Suspect]
     Active Substance: LORLATINIB
     Indication: NON-SMALL CELL LUNG CANCER METASTATIC
     Dosage: UNK, CYCLIC
     Dates: start: 201902

REACTIONS (2)
  - Acute respiratory distress syndrome [Fatal]
  - Pneumonitis [Fatal]

NARRATIVE: CASE EVENT DATE: 2019
